FAERS Safety Report 24424622 (Version 1)
Quarter: 2024Q4

REPORT INFORMATION
  Report Type: Spontaneous
  Country: FR (occurrence: FR)
  Receive Date: 20241010
  Receipt Date: 20241010
  Transmission Date: 20250115
  Serious: Yes (Other)
  Sender: MERCK
  Company Number: FR-009507513-2410FRA003286

PATIENT

DRUGS (1)
  1. TEMOZOLOMIDE [Suspect]
     Active Substance: TEMOZOLOMIDE
     Indication: Malignant oligodendroglioma
     Dosage: UNK

REACTIONS (2)
  - Tumour pseudoprogression [Unknown]
  - Product use in unapproved indication [Unknown]
